FAERS Safety Report 8520586 (Version 4)
Quarter: 2012Q4

REPORT INFORMATION
  Report Type: Report from Study
  Country: US (occurrence: US)
  Receive Date: 20120418
  Receipt Date: 20121029
  Transmission Date: 20130627
  Serious: Yes (Hospitalization)
  Sender: FDA-Public Use
  Company Number: US-ROCHE-CID000000001986059

PATIENT
  Age: 28 Year
  Sex: Female

DRUGS (4)
  1. VEMURAFENIB [Suspect]
     Indication: MALIGNANT MELANOMA
     Route: 048
     Dates: start: 20120202, end: 20120223
  2. VEMURAFENIB [Suspect]
     Route: 048
     Dates: start: 20120302, end: 20120322
  3. VEMURAFENIB [Suspect]
     Route: 048
     Dates: start: 20120326
  4. IPILIMUMAB [Suspect]
     Indication: MALIGNANT MELANOMA
     Dosage: Last dose administered on 02/Mar/2012
     Route: 042
     Dates: start: 20120302, end: 20120302

REACTIONS (3)
  - Hepatotoxicity [Recovered/Resolved]
  - Aspartate aminotransferase increased [Recovered/Resolved]
  - Alanine aminotransferase increased [Recovered/Resolved]
